FAERS Safety Report 7481874-7 (Version None)
Quarter: 2011Q2

REPORT INFORMATION
  Report Type: 
  Country: None (occurrence: None)
  Receive Date: 20110516
  Receipt Date: 20081006
  Transmission Date: 20111010
  Serious: Yes (Death, Hospitalization, Other)
  Sender: FDA-Public Use
  Company Number: US-BAYER-200835189NA

PATIENT
  Age: 63 Year
  Sex: Female
  Weight: 90.703 kg

DRUGS (6)
  1. TRASYLOL [Suspect]
     Indication: CORONARY ARTERY BYPASS
     Dosage: 200MG, THEN 50ML/HR
     Route: 042
     Dates: start: 20051203, end: 20051204
  2. LASIX [Concomitant]
     Indication: CARDIAC FAILURE CONGESTIVE
     Dosage: 120 MG, TID
     Route: 048
     Dates: start: 20000101
  3. TRASYLOL [Suspect]
     Dosage: 1 ML, TEST DOSE
     Dates: start: 20051203, end: 20051204
  4. MANNITOL [Concomitant]
     Dosage: 25 GM
     Route: 042
     Dates: start: 20051204, end: 20051201
  5. TOPROL-XL [Concomitant]
     Dosage: 100 MG, UNK
     Route: 048
  6. COZAAR [Concomitant]
     Dosage: 100 MG, QD
     Route: 048

REACTIONS (9)
  - UNEVALUABLE EVENT [None]
  - ANHEDONIA [None]
  - RENAL FAILURE [None]
  - INJURY [None]
  - ANXIETY [None]
  - FEAR [None]
  - DEPRESSION [None]
  - DEATH [None]
  - PAIN [None]
